FAERS Safety Report 20988697 (Version 1)
Quarter: 2022Q2

REPORT INFORMATION
  Report Type: Spontaneous
  Country: IN (occurrence: IN)
  Receive Date: 20220621
  Receipt Date: 20220621
  Transmission Date: 20220721
  Serious: Yes (Other)
  Sender: FDA-Public Use
  Company Number: IN-PFIZER INC-2021321044

PATIENT
  Age: 81 Year
  Sex: Female

DRUGS (8)
  1. PALBOCICLIB [Suspect]
     Active Substance: PALBOCICLIB
     Indication: Breast cancer metastatic
     Dosage: 125 MG, 1X/DAY
     Route: 048
     Dates: start: 20210315
  2. PALBOCICLIB [Suspect]
     Active Substance: PALBOCICLIB
     Dosage: 250 MG, CYCLIC (D1-D21 DAY F/B ONE WEEK OFF)
     Route: 048
  3. PALBOCICLIB [Suspect]
     Active Substance: PALBOCICLIB
     Dosage: 125 MG, CYCLIC (1X/DAY, 3 WEEKS ON, 1 WEEK OFF)
     Route: 048
     Dates: start: 202103
  4. NEUKINE [Concomitant]
     Dosage: 300 MG
     Route: 058
     Dates: start: 20220120
  5. NEUKINE [Concomitant]
     Dosage: 300 MG
     Route: 058
     Dates: start: 20220121
  6. LETROZOLE [Concomitant]
     Active Substance: LETROZOLE
     Dosage: 2.5 MG, 1X/DAY
     Route: 048
  7. FOLVITE [FOLIC ACID] [Concomitant]
     Dosage: 1 DF, 1X/DAY
     Route: 048
  8. MEGANEURON [MECOBALAMIN] [Concomitant]
     Dosage: UNK, 1X/DAY

REACTIONS (12)
  - Blood calcium decreased [Unknown]
  - Fatigue [Unknown]
  - Haemoglobin abnormal [Unknown]
  - White blood cell count abnormal [Unknown]
  - Blood creatinine increased [Not Recovered/Not Resolved]
  - Tri-iodothyronine abnormal [Unknown]
  - Blood thyroid stimulating hormone increased [Unknown]
  - Haemoglobin decreased [Not Recovered/Not Resolved]
  - White blood cell count decreased [Recovering/Resolving]
  - Platelet count decreased [Not Recovered/Not Resolved]
  - Protein total decreased [Unknown]
  - Off label use [Unknown]

NARRATIVE: CASE EVENT DATE: 20210315
